FAERS Safety Report 25184019 (Version 1)
Quarter: 2025Q2

REPORT INFORMATION
  Report Type: Spontaneous
  Country: US (occurrence: None)
  Receive Date: 20250409
  Receipt Date: 20250409
  Transmission Date: 20250717
  Serious: No
  Sender: FDA-CTU
  Company Number: None

PATIENT
  Age: 77 Year
  Sex: Female
  Weight: 60 kg

DRUGS (1)
  1. NIRMATRELVIR\RITONAVIR [Suspect]
     Active Substance: NIRMATRELVIR\RITONAVIR
     Route: 048
     Dates: start: 20241231, end: 20250104

REACTIONS (3)
  - Anxiety [None]
  - Feeling abnormal [None]
  - Logorrhoea [None]

NARRATIVE: CASE EVENT DATE: 20250108
